FAERS Safety Report 5634499-X (Version None)
Quarter: 2008Q1

REPORT INFORMATION
  Report Type: 
  Country: None (occurrence: None)
  Receive Date: 20080222
  Receipt Date: 20080122
  Transmission Date: 20080703
  Serious: No
  Sender: FDA-Public Use
  Company Number: US-BAYER-200811886NA

PATIENT
  Age: 83 Year
  Sex: Male

DRUGS (4)
  1. AVELOX [Suspect]
     Indication: PNEUMONIA
     Route: 042
     Dates: start: 20080115, end: 20080117
  2. AVELOX [Suspect]
     Indication: PNEUMONIA
     Dosage: AS USED: 400 MG  UNIT DOSE: 400 MG
     Route: 048
     Dates: start: 20080118, end: 20080119
  3. ZITHROMAX [Concomitant]
  4. OTHER UNSPECIFIED MEDICATIONS [Concomitant]

REACTIONS (3)
  - ANOREXIA [None]
  - ASTHENIA [None]
  - HALLUCINATION [None]
